FAERS Safety Report 4533353-4 (Version None)
Quarter: 2004Q4

REPORT INFORMATION
  Report Type: 
  Country: None (occurrence: None)
  Receive Date: 20041220
  Receipt Date: 20041220
  Transmission Date: 20050328
  Serious: Yes (Other)
  Sender: FDA-Public Use
  Company Number: None

PATIENT
  Age: 19 Year
  Sex: Male
  Weight: 65.7716 kg

DRUGS (1)
  1. CORICIDIN HBP COUGH + COLD (CHLORPHENIRAMINE MAL/DEX TABLETS [Suspect]
     Dosage: ORAL
     Route: 048
     Dates: start: 20030414, end: 20030414

REACTIONS (4)
  - AGITATION [None]
  - MYDRIASIS [None]
  - RESPIRATORY ARREST [None]
  - ROAD TRAFFIC ACCIDENT [None]
